FAERS Safety Report 25981465 (Version 1)
Quarter: 2025Q4

REPORT INFORMATION
  Report Type: Spontaneous
  Country: US (occurrence: US)
  Receive Date: 20251030
  Receipt Date: 20251030
  Transmission Date: 20260118
  Serious: No
  Sender: TEVA
  Company Number: US-TEVA-VS-3383881

PATIENT
  Age: 88 Year
  Sex: Female
  Weight: 59 kg

DRUGS (2)
  1. AZELAIC ACID [Suspect]
     Active Substance: AZELAIC ACID
     Indication: Rosacea
     Dosage: TIME INTERVAL: AS NECESSARY
     Route: 061
     Dates: start: 2025, end: 2025
  2. AZELAIC ACID [Suspect]
     Active Substance: AZELAIC ACID
     Indication: Rosacea
     Dosage: ONLY IN THE MORNING
     Route: 061
     Dates: start: 202510

REACTIONS (2)
  - Skin burning sensation [Not Recovered/Not Resolved]
  - Product use issue [Unknown]

NARRATIVE: CASE EVENT DATE: 20250101
